FAERS Safety Report 8972864 (Version 4)
Quarter: 2013Q1

REPORT INFORMATION
  Report Type: Spontaneous
  Country: US (occurrence: US)
  Receive Date: 20121219
  Receipt Date: 20130118
  Transmission Date: 20140127
  Serious: Yes (Hospitalization)
  Sender: FDA-Public Use
  Company Number: US-BIOGENIDEC-2012BI059417

PATIENT
  Age: 56 Year
  Sex: Female

DRUGS (2)
  1. AVONEX [Suspect]
     Indication: MULTIPLE SCLEROSIS
     Route: 030
     Dates: start: 20091118, end: 20120314
  2. AVONEX [Suspect]
     Indication: MULTIPLE SCLEROSIS
     Route: 030
     Dates: start: 20121219

REACTIONS (8)
  - Pneumonia [Recovered/Resolved with Sequelae]
  - Feeling cold [Recovered/Resolved]
  - Delirium [Recovered/Resolved]
  - Sepsis [Recovered/Resolved]
  - Memory impairment [Not Recovered/Not Resolved]
  - Toothache [Recovered/Resolved]
  - Influenza like illness [Recovered/Resolved]
  - Dyspnoea [Unknown]
